FAERS Safety Report 7659569-6 (Version None)
Quarter: 2011Q3

REPORT INFORMATION
  Report Type: 
  Country: None (occurrence: None)
  Receive Date: 20110805
  Receipt Date: 20110727
  Transmission Date: 20111222
  Serious: Yes (Hospitalization, Other)
  Sender: FDA-Public Use
  Company Number: US-AMGEN-USASP2011032573

PATIENT

DRUGS (6)
  1. PEGFILGRASTIM [Concomitant]
  2. CALCIUM ACETATE [Concomitant]
  3. CABAZITAXEL [Concomitant]
  4. XGEVA [Suspect]
     Indication: METASTASES TO BONE
     Dosage: 120 MG, UNK
     Dates: start: 20110527
  5. LEUPROLIDE ACETATE [Concomitant]
  6. VITAMIN D [Concomitant]

REACTIONS (3)
  - HOSPITALISATION [None]
  - HYPOCALCAEMIA [None]
  - SURGERY [None]
